FAERS Safety Report 5013475-4 (Version None)
Quarter: 2006Q2

REPORT INFORMATION
  Report Type: 
  Country: None (occurrence: None)
  Receive Date: 20060525
  Receipt Date: 20060525
  Transmission Date: 20061013
  Serious: No
  Sender: FDA-Public Use
  Company Number: None

PATIENT

DRUGS (2)
  1. MOXIFLOXACIN HCL [Suspect]
  2. FUROSEMIDE [Suspect]

REACTIONS (3)
  - CATHETER RELATED COMPLICATION [None]
  - DRUG ADMINISTRATION ERROR [None]
  - DRUG PHYSIOLOGIC INCOMPATIBILITY [None]
